FAERS Safety Report 8989142 (Version 1)
Quarter: 2012Q4

REPORT INFORMATION
  Report Type: 
  Country: BR (occurrence: BR)
  Receive Date: 20121228
  Receipt Date: 20121228
  Transmission Date: 20130627
  Serious: Yes (Other)
  Sender: FDA-Public Use
  Company Number: PHHY2012BR119430

PATIENT
  Sex: Female

DRUGS (2)
  1. FORASEQ [Suspect]
     Indication: EMPHYSEMA
     Dosage: 2 DF, QD
  2. FLUOXETINE [Suspect]
     Indication: ANXIETY
     Dosage: UNK

REACTIONS (10)
  - Fall [Recovering/Resolving]
  - Lower limb fracture [Recovering/Resolving]
  - Blood pressure abnormal [Recovering/Resolving]
  - Weight decreased [Recovering/Resolving]
  - Spinal pain [Recovering/Resolving]
  - Apnoea [Recovering/Resolving]
  - Fatigue [Recovering/Resolving]
  - Malaise [Recovering/Resolving]
  - Emotional disorder [Recovering/Resolving]
  - Arthralgia [Recovering/Resolving]
